FAERS Safety Report 17978927 (Version 1)
Quarter: 2020Q3

REPORT INFORMATION
  Report Type: Spontaneous
  Country: US (occurrence: US)
  Receive Date: 20200703
  Receipt Date: 20200703
  Transmission Date: 20201103
  Serious: Yes (Disabling)
  Sender: FDA-Public Use
  Company Number: US-TEVA-2020-US-1796454

PATIENT

DRUGS (1)
  1. DOCETAXEL INJECTION [Suspect]
     Active Substance: DOCETAXEL
     Route: 065
     Dates: start: 20160106, end: 20160420

REACTIONS (2)
  - Alopecia [Not Recovered/Not Resolved]
  - Hair injury [Unknown]
